FAERS Safety Report 8293260-0 (Version None)
Quarter: 2012Q2

REPORT INFORMATION
  Report Type: 
  Country: None (occurrence: None)
  Receive Date: 20120417
  Receipt Date: 20110303
  Transmission Date: 20120825
  Serious: No
  Sender: FDA-Public Use
  Company Number: US-ASTRAZENECA-2011SE11878

PATIENT
  Age: 78 Year
  Sex: Female

DRUGS (4)
  1. DYNACIRC CR [Concomitant]
  2. WARFARIN SODIUM [Concomitant]
  3. GENERIC FLECAINIDE [Concomitant]
  4. NEXIUM [Suspect]
     Indication: GASTROOESOPHAGEAL REFLUX DISEASE
     Route: 048

REACTIONS (4)
  - CRYING [None]
  - ABDOMINAL PAIN UPPER [None]
  - HEADACHE [None]
  - FLATULENCE [None]
